FAERS Safety Report 6065092-5 (Version None)
Quarter: 2009Q1

REPORT INFORMATION
  Report Type: 
  Country: None (occurrence: None)
  Receive Date: 20090204
  Receipt Date: 20090105
  Transmission Date: 20090719
  Serious: No
  Sender: FDA-Public Use
  Company Number: US-BAYER-200910061BCC

PATIENT
  Age: 80 Year
  Sex: Female
  Weight: 54 kg

DRUGS (1)
  1. ALEVE [Suspect]
     Indication: RHEUMATOID ARTHRITIS

REACTIONS (2)
  - ABDOMINAL PAIN UPPER [None]
  - RHEUMATOID ARTHRITIS [None]
